FAERS Safety Report 25433933 (Version 2)
Quarter: 2025Q4

REPORT INFORMATION
  Report Type: Spontaneous
  Country: US (occurrence: US)
  Receive Date: 20250613
  Receipt Date: 20251010
  Transmission Date: 20260117
  Serious: No
  Sender: LEO PHARM
  Company Number: US-LEO Pharma-380554

PATIENT
  Age: 46 Year
  Sex: Female

DRUGS (1)
  1. ADBRY [Suspect]
     Active Substance: TRALOKINUMAB-LDRM
     Indication: Dermatitis atopic
     Dosage: TREATMENT IS ONGOING
     Route: 058
     Dates: start: 202311

REACTIONS (1)
  - Trigger points [Unknown]
